FAERS Safety Report 4658547-9 (Version None)
Quarter: 2005Q2

REPORT INFORMATION
  Report Type: 
  Country: None (occurrence: None)
  Receive Date: 20050509
  Receipt Date: 20050429
  Transmission Date: 20051028
  Serious: Yes (Other)
  Sender: FDA-Public Use
  Company Number: 2005068409

PATIENT
  Age: 59 Year
  Sex: Female
  Weight: 68.0396 kg

DRUGS (16)
  1. CELEBREX [Suspect]
     Indication: OSTEOARTHRITIS
  2. BEXTRA [Suspect]
     Indication: OSTEOARTHRITIS
     Dosage: 40 MG (20 MG, 2 IN 1 D), ORAL
     Route: 048
     Dates: start: 20050101, end: 20050301
  3. MELOXICAM [Suspect]
     Indication: ILL-DEFINED DISORDER
     Dates: start: 20040101, end: 20040101
  4. ASPIRIN [Suspect]
     Indication: ILL-DEFINED DISORDER
     Dates: end: 20050301
  5. GLICLAZIDE (GLICLAZIDE) [Suspect]
     Indication: BLOOD PRESSURE
  6. ATENOLOL [Suspect]
     Indication: BLOOD PRESSURE
  7. AMITRIPTYLINE HCL [Concomitant]
  8. LEVOTHROXINE SODIUM (LEVOTHYROXINE SODIUM) [Concomitant]
  9. ALENDRONATE SODIUM [Concomitant]
  10. ESOMEPRAZOLE (ESOMEPRAZOLE) [Concomitant]
  11. EZETIMIBE (EZETIMIBE) [Concomitant]
  12. ROFECOXIB [Concomitant]
  13. ULTRACET [Concomitant]
  14. DIAZEPAM [Concomitant]
  15. ANALGESICS (ANALGESICS) [Concomitant]
  16. TRAMADOL HCL [Concomitant]

REACTIONS (7)
  - DISCOMFORT [None]
  - HAEMORRHAGE [None]
  - OSTEOARTHRITIS [None]
  - PAIN [None]
  - PSORIASIS [None]
  - RASH [None]
  - STRESS [None]
